FAERS Safety Report 8590464-4 (Version None)
Quarter: 2012Q3

REPORT INFORMATION
  Report Type: 
  Country: None (occurrence: None)
  Receive Date: 20120813
  Receipt Date: 20120806
  Transmission Date: 20120928
  Serious: Yes (Other)
  Sender: FDA-Public Use
  Company Number: US-PFIZER INC-2012106134

PATIENT
  Age: 64 Year
  Sex: Female
  Weight: 84.354 kg

DRUGS (25)
  1. LOSARTAN [Concomitant]
     Indication: HYPERTENSION
     Dosage: 50 MG, 1X/DAY
  2. ATORVASTATIN [Concomitant]
     Dosage: 40 MG, 1X/DAY
     Dates: end: 20120723
  3. FISH OIL [Concomitant]
     Dosage: 1000 MG, 1X/DAY
  4. NEXIUM [Concomitant]
     Dosage: 20 MG, 1X/DAY
  5. ISOSORBIDE MONONITRATE [Concomitant]
     Dosage: 30 MG, 1X/DAY
     Dates: end: 20111031
  6. FISH OIL [Concomitant]
     Dosage: 2000 MG, 1X/DAY
     Dates: end: 20120507
  7. CO-Q-10 [Concomitant]
     Dosage: 100 MG, 1X/DAY
  8. NITROSTAT [Concomitant]
     Dosage: 0.4 MG, AS NEEDED
     Route: 060
  9. VENLAFAXINE HCL [Suspect]
     Indication: DEPRESSION
     Dosage: 100 MG DAILY
     Route: 048
     Dates: start: 20000101
  10. CARAFATE [Concomitant]
     Dosage: 1 MG, 1X/DAY
  11. SIMVASTATIN [Concomitant]
     Dosage: 40 MG TABLET BEFORE BED TIME
     Dates: end: 20111031
  12. VENLAFAXINE HCL [Suspect]
     Indication: PANIC ATTACK
  13. LIPITOR [Concomitant]
     Indication: BLOOD CHOLESTEROL INCREASED
     Dosage: 40 MG, 1X/DAY
     Route: 048
  14. HYDROXYZINE HYDROCHLORIDE [Concomitant]
     Dosage: 10 MG, 2X/DAY
     Dates: end: 20120507
  15. ZYRTEC [Concomitant]
     Indication: HYPERSENSITIVITY
     Dosage: 10 MG, 1X/DAY
  16. ASPIRIN [Concomitant]
     Dosage: UNK, 2X/DAY
  17. NIASPAN [Concomitant]
     Dosage: 500 MG, 1X/DAY
  18. ZETIA [Concomitant]
     Indication: BLOOD CHOLESTEROL INCREASED
     Dosage: 10 MG, 1X/DAY
     Route: 048
  19. NITROLINGUAL [Concomitant]
     Dosage: 0.4 MG/SPRAY AS NEEDED
  20. EFFIENT [Concomitant]
     Dosage: 10 MG, 1X/DAY
     Dates: end: 20120507
  21. BISOPROLOL [Concomitant]
     Indication: HYPERTENSION
     Dosage: 5-6.25 MG, DAILY
  22. PRASUGREL [Concomitant]
     Dosage: 10 MG, 1X/DAY
  23. ASPIRIN [Concomitant]
     Dosage: 325 MG, 1X/DAY
  24. PLAVIX [Concomitant]
     Dosage: 75 MG, 1X/DAY
     Dates: end: 20120507
  25. COZAAR [Concomitant]
     Dosage: 50 MG, 1X/DAY
     Dates: end: 20111031

REACTIONS (3)
  - CHEST PAIN [None]
  - SYNCOPE [None]
  - CORONARY ARTERY OCCLUSION [None]
